FAERS Safety Report 4361459-1 (Version None)
Quarter: 2004Q2

REPORT INFORMATION
  Report Type: 
  Country: None (occurrence: None)
  Receive Date: 20040521
  Receipt Date: 20030630
  Transmission Date: 20050107
  Serious: No
  Sender: FDA-Public Use
  Company Number: US-GLAXOSMITHKLINE-A0414538A

PATIENT
  Age: 46 Year
  Sex: Female

DRUGS (3)
  1. WELLBUTRIN [Suspect]
     Indication: DEPRESSION
     Dosage: 75MG TWICE PER DAY
     Route: 048
     Dates: start: 20020101, end: 20030627
  2. WELLBUTRIN [Suspect]
     Route: 048
  3. ADVIL [Concomitant]

REACTIONS (5)
  - CHILLS [None]
  - HEADACHE [None]
  - MYALGIA [None]
  - PYREXIA [None]
  - TINNITUS [None]
